FAERS Safety Report 22101763 (Version 5)
Quarter: 2023Q4

REPORT INFORMATION
  Report Type: Spontaneous
  Country: US (occurrence: US)
  Receive Date: 20230316
  Receipt Date: 20231121
  Transmission Date: 20240110
  Serious: Yes (Hospitalization)
  Sender: FDA-Public Use
  Company Number: US-BRISTOL-MYERS SQUIBB COMPANY-2023-036434

PATIENT
  Age: 67 Year
  Sex: Female
  Weight: 107.05 kg

DRUGS (1)
  1. REVLIMID [Suspect]
     Active Substance: LENALIDOMIDE
     Indication: Plasma cell myeloma
     Dosage: 1 CAPSULE ONCE DAILY FOR 28-DAY CYCLE
     Route: 048
     Dates: start: 20210625

REACTIONS (2)
  - Urinary tract infection [Recovered/Resolved]
  - Haematological infection [Unknown]

NARRATIVE: CASE EVENT DATE: 20230901
